FAERS Safety Report 10308086 (Version 1)
Quarter: 2014Q3

REPORT INFORMATION
  Report Type: Spontaneous
  Country: DK (occurrence: FR)
  Receive Date: 20140716
  Receipt Date: 20140716
  Transmission Date: 20150326
  Serious: Yes (Hospitalization)
  Sender: FDA-Public Use
  Company Number: FR-FRI-1000068832

PATIENT
  Age: 78 Year
  Sex: Female

DRUGS (8)
  1. PRADAXA [Suspect]
     Active Substance: DABIGATRAN ETEXILATE MESYLATE
     Indication: ARRHYTHMIA
     Route: 048
     Dates: end: 20140524
  2. CYSTINE B6 BAILLEUL [Concomitant]
  3. ISOPTIN [Concomitant]
     Active Substance: VERAPAMIL HYDROCHLORIDE
  4. ESCITALOPRAM [Suspect]
     Active Substance: ESCITALOPRAM OXALATE
     Dosage: 5 MG
     Route: 048
  5. EUCREAS 50 / 1000 MG [Concomitant]
  6. LYRICA [Concomitant]
     Active Substance: PREGABALIN
  7. COAPROVEL 300 / 25 MG [Concomitant]
  8. EZETROL [Concomitant]
     Active Substance: EZETIMIBE

REACTIONS (2)
  - Subdural haematoma [Recovering/Resolving]
  - Condition aggravated [Recovering/Resolving]

NARRATIVE: CASE EVENT DATE: 20140524
